FAERS Safety Report 11580337 (Version 1)
Quarter: 2015Q3

REPORT INFORMATION
  Report Type: Spontaneous
  Country: US (occurrence: US)
  Receive Date: 20150916
  Receipt Date: 20150916
  Transmission Date: 20151125
  Serious: No
  Sender: FDA-Public Use
  Company Number: US-ELI_LILLY_AND_COMPANY-US200804004113

PATIENT
  Age: 66 Year
  Sex: Female

DRUGS (2)
  1. BETA BLOCKING AGENTS [Concomitant]
     Active Substance: UNSPECIFIED INGREDIENT
  2. FORTEO [Suspect]
     Active Substance: TERIPARATIDE
     Dates: end: 200710

REACTIONS (1)
  - Emphysema [Unknown]

NARRATIVE: CASE EVENT DATE: 200801
